FAERS Safety Report 10562277 (Version 1)
Quarter: 2014Q4

REPORT INFORMATION
  Report Type: Spontaneous
  Country: US (occurrence: US)
  Receive Date: 20141104
  Receipt Date: 20141104
  Transmission Date: 20150529
  Serious: Yes (Other)
  Sender: FDA-Public Use
  Company Number: US-SUN PHARMACEUTICAL INDUSTRIES LTD-2014SUN02450

PATIENT

DRUGS (6)
  1. ETOPOSIDE. [Suspect]
     Active Substance: ETOPOSIDE
     Indication: NEUROBLASTOMA
     Dosage: CYCLES 3 AND 5
     Route: 065
  2. CYCLOPHOSPHAMIDE. [Suspect]
     Active Substance: CYCLOPHOSPHAMIDE
     Indication: NEUROBLASTOMA
     Dosage: CYCLE 1, 2, 4
     Route: 065
  3. CISPLATIN. [Suspect]
     Active Substance: CISPLATIN
     Indication: NEUROBLASTOMA
     Dosage: CYCLES 3 AND 5
     Route: 065
  4. VINCRISTINE [Suspect]
     Active Substance: VINCRISTINE
     Indication: NEUROBLASTOMA
     Dosage: CYCLE 4
     Route: 065
  5. TOPOTECAN [Suspect]
     Active Substance: TOPOTECAN\TOPOTECAN HYDROCHLORIDE
     Indication: NEUROBLASTOMA
     Dosage: CYCLE 1 AND 2
     Route: 065
  6. DOXORUBICIN HYDROCHLORIDE INJECTION 2MG/ML [Suspect]
     Active Substance: DOXORUBICIN HYDROCHLORIDE
     Indication: NEUROBLASTOMA
     Dosage: CYCLE 4
     Route: 065

REACTIONS (3)
  - Hypertension [Unknown]
  - Renal failure [Unknown]
  - Posterior reversible encephalopathy syndrome [Unknown]
